FAERS Safety Report 5709623-0 (Version None)
Quarter: 2008Q2

REPORT INFORMATION
  Report Type: 
  Country: None (occurrence: None)
  Receive Date: 20080418
  Receipt Date: 20080414
  Transmission Date: 20081010
  Serious: Yes (Hospitalization)
  Sender: FDA-Public Use
  Company Number: B0514720A

PATIENT
  Age: 70 Year
  Sex: Male

DRUGS (18)
  1. ROSIGLITAZONE [Suspect]
     Route: 048
     Dates: start: 20021220
  2. METFORMIN HCL [Concomitant]
     Dosage: 2550MG PER DAY
     Route: 048
     Dates: start: 20010501
  3. METOPROLOL TARTRATE [Concomitant]
     Indication: HYPERTENSION
     Dosage: 200MG PER DAY
     Route: 048
     Dates: start: 20020313
  4. ALBYL MINOR [Concomitant]
     Indication: PROPHYLAXIS
     Dosage: 125MG PER DAY
     Route: 048
     Dates: start: 19950101
  5. ATACAND [Concomitant]
     Indication: HYPERTENSION
     Dosage: 16MG PER DAY
     Route: 048
     Dates: start: 20001026
  6. LASIX [Concomitant]
     Indication: HYPERTENSION
     Dosage: 30MG PER DAY
     Route: 048
     Dates: start: 20010528
  7. INOLAXOL [Concomitant]
     Dosage: 5MG PER DAY
     Route: 048
     Dates: start: 20010101
  8. PLENDIL [Concomitant]
     Indication: HYPERTENSION
     Dosage: 5MG PER DAY
     Route: 048
     Dates: start: 20021106
  9. DIKLOFENAK [Concomitant]
     Indication: INFLAMMATION
     Dosage: 50MG PER DAY
     Route: 048
     Dates: start: 20021106
  10. LANSOPRAZOLE [Concomitant]
     Dosage: 30MG PER DAY
     Route: 048
     Dates: start: 20021106
  11. ASPIRIN [Concomitant]
     Indication: PROPHYLAXIS
     Dosage: 75MG PER DAY
     Route: 048
     Dates: start: 20030426
  12. SIMVASTATIN [Concomitant]
     Dosage: 20MG PER DAY
     Route: 048
     Dates: start: 20040824
  13. UNKNOWN MEDICATION [Concomitant]
     Indication: PAIN
     Dosage: 60MG PER DAY
     Route: 048
     Dates: start: 20040830
  14. SOTALOL HCL [Concomitant]
     Indication: ATRIAL FIBRILLATION
     Dosage: 160MG PER DAY
     Route: 048
     Dates: start: 20041230
  15. TRIOBE [Concomitant]
     Indication: VITAMIN B COMPLEX DEFICIENCY
     Dosage: 4.3MG PER DAY
     Route: 048
     Dates: start: 20041207
  16. LEVOTHYROXINE SODIUM [Concomitant]
     Indication: HYPOTHYROIDISM
     Dosage: 50MCG PER DAY
     Route: 048
     Dates: start: 20061115
  17. ATACAND HCT [Concomitant]
     Indication: HYPERTENSION
     Route: 048
     Dates: start: 20061202
  18. ISOSORBIDE MONONITRATE [Concomitant]
     Indication: PAIN
     Dosage: 60MG PER DAY
     Route: 048
     Dates: start: 20040830

REACTIONS (1)
  - CONSTIPATION [None]
